FAERS Safety Report 5407089-1 (Version None)
Quarter: 2007Q3

REPORT INFORMATION
  Report Type: 
  Country: None (occurrence: None)
  Receive Date: 20070807
  Receipt Date: 20070803
  Transmission Date: 20080115
  Serious: Yes (Hospitalization)
  Sender: FDA-Public Use
  Company Number: HQWYE388103AUG07

PATIENT
  Sex: Male

DRUGS (5)
  1. CORDARONE [Suspect]
     Indication: ATRIAL FIBRILLATION
     Route: 048
     Dates: start: 20061015, end: 20070310
  2. ZOCOR [Concomitant]
     Dosage: 1 UNIT EVERY 1 DAY
     Route: 048
  3. PROSCAR [Concomitant]
     Indication: BENIGN PROSTATIC HYPERPLASIA
     Route: 048
  4. MINISINTROM [Concomitant]
     Indication: ATRIAL FIBRILLATION
     Route: 048
  5. DEPAKENE [Concomitant]
     Indication: CONVULSION
     Route: 048

REACTIONS (5)
  - AGEUSIA [None]
  - CEREBELLAR SYNDROME [None]
  - DEAFNESS BILATERAL [None]
  - HYPERKALAEMIA [None]
  - HYPONATRAEMIA [None]
